FAERS Safety Report 6168657-5 (Version None)
Quarter: 2009Q2

REPORT INFORMATION
  Report Type: 
  Country: None (occurrence: None)
  Receive Date: 20090423
  Receipt Date: 20090415
  Transmission Date: 20091009
  Serious: Yes (Other)
  Sender: FDA-Public Use
  Company Number: 2009SP008184

PATIENT
  Age: 43 Year
  Sex: Female

DRUGS (3)
  1. INTRON A [Suspect]
     Indication: MALIGNANT MELANOMA
     Dosage: 38 MIU; QD; IV;  19 MIU; TIW; SC
     Route: 042
     Dates: start: 20090101, end: 20090201
  2. INTRON A [Suspect]
     Indication: MALIGNANT MELANOMA
     Dosage: 38 MIU; QD; IV;  19 MIU; TIW; SC
     Route: 042
     Dates: start: 20090301, end: 20090401
  3. PARACETAMOL [Concomitant]

REACTIONS (1)
  - RETINAL DETACHMENT [None]
